FAERS Safety Report 7132861-X (Version None)
Quarter: 2010Q4

REPORT INFORMATION
  Report Type: 
  Country: None (occurrence: None)
  Receive Date: 20101202
  Receipt Date: 20101129
  Transmission Date: 20110411
  Serious: No
  Sender: FDA-Public Use
  Company Number: US-B.I. PHARMACEUTICALS,INC./RIDGEFIELD-2010-BP-13469BP

PATIENT
  Sex: Female

DRUGS (3)
  1. SPIRIVA [Suspect]
     Indication: DYSPNOEA
     Dosage: 18 MCG
     Route: 055
     Dates: start: 20101128
  2. FUROSEMIDE [Concomitant]
     Indication: FLUID RETENTION
  3. NORVASC [Concomitant]
     Indication: HYPERTENSION

REACTIONS (2)
  - CHEST PAIN [None]
  - DRUG INEFFECTIVE [None]
